FAERS Safety Report 6156938-0 (Version None)
Quarter: 2009Q2

REPORT INFORMATION
  Report Type: 
  Country: None (occurrence: None)
  Receive Date: 20090416
  Receipt Date: 20090406
  Transmission Date: 20091009
  Serious: Yes (Life-Threatening)
  Sender: FDA-Public Use
  Company Number: B0564113A

PATIENT
  Sex: Male
  Weight: 60 kg

DRUGS (2)
  1. ARIXTRA [Suspect]
     Indication: DRUG USE FOR UNKNOWN INDICATION
     Dosage: 2.5MG PER DAY
     Route: 058
     Dates: start: 20090131, end: 20090208
  2. KARDEGIC [Suspect]
     Indication: DRUG USE FOR UNKNOWN INDICATION
     Route: 048
     Dates: end: 20090208

REACTIONS (4)
  - COMA [None]
  - GENERAL PHYSICAL HEALTH DETERIORATION [None]
  - SUBCUTANEOUS HAEMATOMA [None]
  - SUBDURAL HAEMATOMA [None]
